FAERS Safety Report 21874555 (Version 2)
Quarter: 2023Q1

REPORT INFORMATION
  Report Type: Spontaneous
  Country: US (occurrence: None)
  Receive Date: 20230117
  Receipt Date: 20230301
  Transmission Date: 20230418
  Serious: Yes (Other)
  Sender: FDA-Public Use
  Company Number: 2023A005405

PATIENT

DRUGS (2)
  1. SYMBICORT [Suspect]
     Active Substance: BUDESONIDE\FORMOTEROL FUMARATE DIHYDRATE
     Dosage: 160/4.5MCG 2 PUFFS TWICE A DAY FOR THE PAST 3-4 YEARS, DOSE 160 MICROGRAM/MG, FREQUENCY - TWO TIM...
     Route: 055
  2. FASENRA [Suspect]
     Active Substance: BENRALIZUMAB
     Dosage: UNKNOWN
     Route: 058

REACTIONS (5)
  - Cerebrovascular accident [Unknown]
  - Illness [Unknown]
  - Decreased activity [Unknown]
  - Dizziness [Unknown]
  - Wrong technique in device usage process [Unknown]
